FAERS Safety Report 7520549-2 (Version None)
Quarter: 2011Q2

REPORT INFORMATION
  Report Type: 
  Country: None (occurrence: None)
  Receive Date: 20110602
  Receipt Date: 20110526
  Transmission Date: 20111010
  Serious: Yes (Death, Other)
  Sender: FDA-Public Use
  Company Number: PHHY2011IT45422

PATIENT
  Age: 65 Year
  Sex: Female

DRUGS (6)
  1. OMEPRAZOLE [Concomitant]
     Dosage: 40 MG, BID
  2. RADIATION TREATMENT [Concomitant]
  3. LANSOPRAZOLE [Concomitant]
     Dosage: 30 MG, BID
  4. OCTREOTIDE ACETATE [Suspect]
     Indication: CARCINOID TUMOUR OF THE STOMACH
     Dosage: 20 MG EVERY 28 DAYS
  5. OCTREOTIDE ACETATE [Suspect]
     Dosage: 30 MG EVERY 28 DAYS
  6. TEMOZOLOMIDE [Concomitant]
     Dosage: 75 MG/M2, DAILY

REACTIONS (7)
  - NEOPLASM MALIGNANT [None]
  - GLIOBLASTOMA MULTIFORME [None]
  - SPEECH DISORDER [None]
  - BLOOD GASTRIN INCREASED [None]
  - CENTRAL NERVOUS SYSTEM LESION [None]
  - APRAXIA [None]
  - BLOOD CHROMOGRANIN A INCREASED [None]
